FAERS Safety Report 8960448 (Version 1)
Quarter: 2012Q4

REPORT INFORMATION
  Report Type: Spontaneous
  Country: US (occurrence: None)
  Receive Date: 20121211
  Receipt Date: 20121211
  Transmission Date: 20130627
  Serious: Yes (Other)
  Sender: FDA-Public Use
  Company Number: None

PATIENT
  Age: 57 Year
  Sex: Female
  Weight: 81.65 kg

DRUGS (1)
  1. BYSTOLIC [Suspect]
     Indication: REGULATE HEART RATE
     Dosage: 5 mg 1/day Pill
     Dates: start: 201208, end: 20121025

REACTIONS (9)
  - Joint swelling [None]
  - Oedema peripheral [None]
  - Pain in extremity [None]
  - Arthralgia [None]
  - Vein disorder [None]
  - Impaired work ability [None]
  - Activities of daily living impaired [None]
  - Gait disturbance [None]
  - Insomnia [None]
